FAERS Safety Report 6343822-2 (Version None)
Quarter: 2009Q3

REPORT INFORMATION
  Report Type: 
  Country: None (occurrence: None)
  Receive Date: 20090821
  Receipt Date: 20090526
  Transmission Date: 20100115
  Serious: No
  Sender: FDA-Public Use
  Company Number: 8046841

PATIENT
  Age: 58 Year
  Sex: Female
  Weight: 63.9 kg

DRUGS (6)
  1. CIMZIA [Suspect]
     Indication: CROHN'S DISEASE
     Dosage: 400 MG SC
     Route: 058
     Dates: start: 20090326
  2. FLAGYL [Concomitant]
  3. PENTASA [Concomitant]
  4. MULTI-VITAMIN [Concomitant]
  5. CALCIUM [Concomitant]
  6. FOSAMAX [Concomitant]

REACTIONS (2)
  - PRURITUS GENERALISED [None]
  - RASH GENERALISED [None]
